FAERS Safety Report 24654445 (Version 1)
Quarter: 2024Q4

REPORT INFORMATION
  Report Type: Spontaneous
  Country: US (occurrence: None)
  Receive Date: 20241122
  Receipt Date: 20241122
  Transmission Date: 20250114
  Serious: Yes (Other)
  Sender: Public
  Company Number: None

PATIENT
  Age: 62 Year
  Sex: Female
  Weight: 67.5 kg

DRUGS (2)
  1. XDEMVY [Suspect]
     Active Substance: LOTILANER
     Indication: Product used for unknown indication
     Dosage: OTHER QUANTITY : 1 DROP(S)?FREQUENCY : EVERY 12 HOURS?
     Route: 047
     Dates: start: 20241114, end: 20241122
  2. ZINC [Concomitant]
     Active Substance: ZINC

REACTIONS (3)
  - Dry eye [None]
  - Eyelid rash [None]
  - Eye irritation [None]

NARRATIVE: CASE EVENT DATE: 20241120
